FAERS Safety Report 11026733 (Version 1)
Quarter: 2015Q2

REPORT INFORMATION
  Report Type: Spontaneous
  Country: US (occurrence: US)
  Receive Date: 20150414
  Receipt Date: 20150414
  Transmission Date: 20150821
  Serious: Yes (Other)
  Sender: FDA-Public Use
  Company Number: US-PFIZER INC-2015123712

PATIENT
  Age: 55 Year
  Sex: Male

DRUGS (1)
  1. CLINDAMYCIN [Suspect]
     Active Substance: CLINDAMYCIN\CLINDAMYCIN PHOSPHATE
     Indication: SIALOADENITIS
     Dosage: 150 MG, 4X/DAY
     Route: 048

REACTIONS (2)
  - Polyarthritis [Recovered/Resolved]
  - Pseudomembranous colitis [Recovering/Resolving]
